FAERS Safety Report 7983351-3 (Version None)
Quarter: 2011Q4

REPORT INFORMATION
  Report Type: 
  Country: None (occurrence: None)
  Receive Date: 20111215
  Receipt Date: 20111130
  Transmission Date: 20120403
  Serious: Yes (Hospitalization)
  Sender: FDA-Public Use
  Company Number: NL-MEDIMMUNE-MEDI-0014105

PATIENT
  Sex: Male
  Weight: 5.53 kg

DRUGS (2)
  1. SYNAGIS [Suspect]
     Indication: PREMATURE BABY
     Route: 030
     Dates: start: 20111103, end: 20111103
  2. SYNAGIS [Suspect]
     Route: 030
     Dates: start: 20111130, end: 20111130

REACTIONS (1)
  - CONSTIPATION [None]
